FAERS Safety Report 6472395-9 (Version None)
Quarter: 2009Q4

REPORT INFORMATION
  Report Type: 
  Country: None (occurrence: None)
  Receive Date: 20091203
  Receipt Date: 20091201
  Transmission Date: 20100525
  Serious: Yes (Life-Threatening, Hospitalization)
  Sender: FDA-Public Use
  Company Number: GB-MERCK-0906GBR00071

PATIENT
  Age: 77 Year
  Sex: Male
  Weight: 76 kg

DRUGS (14)
  1. ZOCOR [Suspect]
     Indication: CEREBROVASCULAR ACCIDENT
     Route: 048
     Dates: start: 20081001, end: 20090513
  2. ZOCOR [Suspect]
     Route: 048
     Dates: start: 20090513, end: 20090515
  3. ZOCOR [Suspect]
     Indication: MYOCARDIAL ISCHAEMIA
     Route: 048
     Dates: start: 20081001, end: 20090513
  4. ZOCOR [Suspect]
     Route: 048
     Dates: start: 20090513, end: 20090515
  5. AMIODARONE [Concomitant]
     Indication: ATRIAL FIBRILLATION
     Route: 048
     Dates: start: 20060801, end: 20090526
  6. AMLODIPINE [Concomitant]
     Indication: HYPERTENSION
     Route: 048
  7. ASPIRIN [Concomitant]
     Indication: CEREBROVASCULAR ACCIDENT
     Route: 048
     Dates: start: 20070101, end: 20090515
  8. ASPIRIN [Concomitant]
     Indication: MYOCARDIAL ISCHAEMIA
     Route: 048
     Dates: start: 20070101, end: 20090515
  9. AMOXICILLIN AND CLAVULANATE POTASSIUM [Concomitant]
     Route: 065
     Dates: start: 20090423
  10. NITROGLYCERIN [Concomitant]
     Route: 054
  11. GOSERELIN [Concomitant]
     Route: 065
     Dates: start: 20090414
  12. RAMIPRIL [Concomitant]
     Route: 065
  13. LEVOTHYROXINE SODIUM [Concomitant]
     Indication: HYPERTHYROIDISM
     Route: 048
     Dates: start: 20030601
  14. TIMOLOL [Concomitant]
     Route: 047

REACTIONS (2)
  - BLOOD CREATINE PHOSPHOKINASE INCREASED [None]
  - MUSCLE NECROSIS [None]
